FAERS Safety Report 12524483 (Version 2)
Quarter: 2016Q3

REPORT INFORMATION
  Report Type: Spontaneous
  Country: FR (occurrence: FR)
  Receive Date: 20160704
  Receipt Date: 20160820
  Transmission Date: 20161109
  Serious: Yes (Hospitalization, Other)
  Sender: FDA-Public Use
  Company Number: FR-AUROBINDO-AUR-APL-2016-08349

PATIENT
  Age: 59 Year
  Sex: Male

DRUGS (3)
  1. PREDNISONE. [Suspect]
     Active Substance: PREDNISONE
     Indication: PRODUCT USED FOR UNKNOWN INDICATION
     Dosage: 10 MG, DAILY
     Route: 065
  2. TACROLIMUS. [Suspect]
     Active Substance: TACROLIMUS
     Indication: PRODUCT USED FOR UNKNOWN INDICATION
     Dosage: 3.5 MG, DAILY
     Route: 065
  3. MYCOPHENOLATE [Suspect]
     Active Substance: MYCOPHENOLIC ACID
     Indication: PRODUCT USED FOR UNKNOWN INDICATION
     Dosage: 2 G, DAILY
     Route: 065

REACTIONS (5)
  - Phaehyphomycosis [Recovering/Resolving]
  - Abscess [Recovering/Resolving]
  - Pain [Recovering/Resolving]
  - Condition aggravated [Recovering/Resolving]
  - Purulent discharge [Recovering/Resolving]
